FAERS Safety Report 4307913-X (Version None)
Quarter: 2004Q1

REPORT INFORMATION
  Report Type: 
  Country: None (occurrence: None)
  Receive Date: 20040301
  Receipt Date: 20011205
  Transmission Date: 20041129
  Serious: No
  Sender: FDA-Public Use
  Company Number: US-BRISTOL-MYERS SQUIBB COMPANY-11615655

PATIENT
  Sex: Female

DRUGS (2)
  1. GLUCOPHAGE [Suspect]
     Indication: DIABETES MELLITUS
  2. GLUCOTROL XL [Suspect]
     Indication: DIABETES MELLITUS

REACTIONS (1)
  - AMNESIA [None]
